FAERS Safety Report 5522851-2 (Version None)
Quarter: 2007Q4

REPORT INFORMATION
  Report Type: 
  Country: None (occurrence: None)
  Receive Date: 20071115
  Receipt Date: 20071102
  Transmission Date: 20080405
  Serious: Yes (Congenital Anomaly)
  Sender: FDA-Public Use
  Company Number: 100#03#2007-04618

PATIENT

DRUGS (1)
  1. CITALOPRAM (CITALOPRAM) (CITALOPRAM) [Suspect]
     Indication: DEPRESSION
     Dosage: 20 MG, TRANSPLACENTAL
     Route: 064
     Dates: start: 20070525, end: 20070609

REACTIONS (3)
  - ABORTION INDUCED [None]
  - DRUG EXPOSURE DURING PREGNANCY [None]
  - TRISOMY 18 [None]
